FAERS Safety Report 25236129 (Version 1)
Quarter: 2025Q2

REPORT INFORMATION
  Report Type: Spontaneous
  Country: FR (occurrence: FR)
  Receive Date: 20250424
  Receipt Date: 20250424
  Transmission Date: 20250717
  Serious: Yes (Other)
  Sender: MYLAN
  Company Number: None

PATIENT
  Age: 46 Year
  Sex: Female

DRUGS (16)
  1. LYRICA [Suspect]
     Active Substance: PREGABALIN
     Indication: Product used for unknown indication
     Dates: start: 20250309, end: 20250309
  2. LYRICA [Suspect]
     Active Substance: PREGABALIN
     Route: 048
     Dates: start: 20250309, end: 20250309
  3. LYRICA [Suspect]
     Active Substance: PREGABALIN
     Route: 048
     Dates: start: 20250309, end: 20250309
  4. LYRICA [Suspect]
     Active Substance: PREGABALIN
     Dates: start: 20250309, end: 20250309
  5. ACETAMINOPHEN\OPIUM [Suspect]
     Active Substance: ACETAMINOPHEN\OPIUM
     Indication: Product used for unknown indication
     Dates: start: 20250311, end: 20250311
  6. ACETAMINOPHEN\OPIUM [Suspect]
     Active Substance: ACETAMINOPHEN\OPIUM
     Route: 048
     Dates: start: 20250311, end: 20250311
  7. ACETAMINOPHEN\OPIUM [Suspect]
     Active Substance: ACETAMINOPHEN\OPIUM
     Route: 048
     Dates: start: 20250311, end: 20250311
  8. ACETAMINOPHEN\OPIUM [Suspect]
     Active Substance: ACETAMINOPHEN\OPIUM
     Dates: start: 20250311, end: 20250311
  9. CANNABIS SATIVA SUBSP. INDICA TOP [Concomitant]
     Active Substance: CANNABIS SATIVA SUBSP. INDICA TOP
  10. CANNABIS SATIVA SUBSP. INDICA TOP [Concomitant]
     Active Substance: CANNABIS SATIVA SUBSP. INDICA TOP
     Route: 055
  11. CANNABIS SATIVA SUBSP. INDICA TOP [Concomitant]
     Active Substance: CANNABIS SATIVA SUBSP. INDICA TOP
     Route: 055
  12. CANNABIS SATIVA SUBSP. INDICA TOP [Concomitant]
     Active Substance: CANNABIS SATIVA SUBSP. INDICA TOP
  13. ALCOHOL [Concomitant]
     Active Substance: ALCOHOL
  14. ALCOHOL [Concomitant]
     Active Substance: ALCOHOL
     Route: 065
  15. ALCOHOL [Concomitant]
     Active Substance: ALCOHOL
     Route: 065
  16. ALCOHOL [Concomitant]
     Active Substance: ALCOHOL

REACTIONS (4)
  - Substance abuse [Unknown]
  - Sinus bradycardia [Recovered/Resolved]
  - Miosis [Recovered/Resolved]
  - Intentional product misuse [Not Recovered/Not Resolved]

NARRATIVE: CASE EVENT DATE: 20250309
